FAERS Safety Report 5887374-X (Version None)
Quarter: 2008Q3

REPORT INFORMATION
  Report Type: 
  Country: None (occurrence: None)
  Receive Date: 20080917
  Receipt Date: 20080917
  Transmission Date: 20090109
  Serious: Yes (Other)
  Sender: FDA-Public Use
  Company Number: None

PATIENT
  Age: 44 Year
  Sex: Female
  Weight: 67.3 kg

DRUGS (1)
  1. SODIUM CHLORIDE [Suspect]
     Indication: INDWELLING CATHETER MANAGEMENT
     Dosage: FLUSH Q SHIFT
     Dates: start: 20080901

REACTIONS (1)
  - DYSGEUSIA [None]
